FAERS Safety Report 25375429 (Version 4)
Quarter: 2025Q3

REPORT INFORMATION
  Report Type: Spontaneous
  Country: EU (occurrence: EU)
  Receive Date: 20250529
  Receipt Date: 20250715
  Transmission Date: 20251020
  Serious: Yes (Hospitalization, Other)
  Sender: MYLAN
  Company Number: EU-BRUNO-20250157

PATIENT
  Age: 53 Year
  Sex: Male
  Weight: 101 kg

DRUGS (12)
  1. METFORMIN [Suspect]
     Active Substance: METFORMIN HYDROCHLORIDE
     Indication: Type 2 diabetes mellitus
     Dosage: 1000 MILLIGRAM, BID
     Dates: start: 201401, end: 202112
  2. METFORMIN [Suspect]
     Active Substance: METFORMIN HYDROCHLORIDE
     Dosage: 1000 MILLIGRAM, BID
     Route: 065
     Dates: start: 201401, end: 202112
  3. METFORMIN [Suspect]
     Active Substance: METFORMIN HYDROCHLORIDE
     Dosage: 1000 MILLIGRAM, BID
     Route: 065
     Dates: start: 201401, end: 202112
  4. METFORMIN [Suspect]
     Active Substance: METFORMIN HYDROCHLORIDE
     Dosage: 1000 MILLIGRAM, BID
     Dates: start: 201401, end: 202112
  5. DULAGLUTIDE [Suspect]
     Active Substance: DULAGLUTIDE
     Indication: Type 2 diabetes mellitus
     Dosage: 1.5 MILLIGRAM, QW
     Dates: start: 202111, end: 202112
  6. DULAGLUTIDE [Suspect]
     Active Substance: DULAGLUTIDE
     Dosage: 1.5 MILLIGRAM, QW
     Route: 058
     Dates: start: 202111, end: 202112
  7. DULAGLUTIDE [Suspect]
     Active Substance: DULAGLUTIDE
     Dosage: 1.5 MILLIGRAM, QW
     Route: 058
     Dates: start: 202111, end: 202112
  8. DULAGLUTIDE [Suspect]
     Active Substance: DULAGLUTIDE
     Dosage: 1.5 MILLIGRAM, QW
     Dates: start: 202111, end: 202112
  9. INVOKANA [Suspect]
     Active Substance: CANAGLIFLOZIN
     Indication: Type 2 diabetes mellitus
     Dosage: 300 MILLIGRAM, QD
     Dates: start: 202111, end: 202112
  10. INVOKANA [Suspect]
     Active Substance: CANAGLIFLOZIN
     Indication: Diabetic ketoacidosis
     Dosage: 300 MILLIGRAM, QD
     Route: 048
     Dates: start: 202111, end: 202112
  11. INVOKANA [Suspect]
     Active Substance: CANAGLIFLOZIN
     Dosage: 300 MILLIGRAM, QD
     Route: 048
     Dates: start: 202111, end: 202112
  12. INVOKANA [Suspect]
     Active Substance: CANAGLIFLOZIN
     Dosage: 300 MILLIGRAM, QD
     Dates: start: 202111, end: 202112

REACTIONS (13)
  - Neutrophilia [Recovered/Resolved]
  - Acidosis [Recovered/Resolved]
  - Diabetic ketoacidosis [Recovered/Resolved]
  - Tachycardia [Unknown]
  - Latent autoimmune diabetes in adults [Unknown]
  - Blood creatinine increased [Unknown]
  - Hyperkalaemia [Unknown]
  - Hyperglycaemia [Unknown]
  - Glycosylated haemoglobin abnormal [Unknown]
  - Blood potassium increased [Unknown]
  - Abdominal pain upper [Unknown]
  - Vomiting [Unknown]
  - Blood lactic acid increased [Unknown]

NARRATIVE: CASE EVENT DATE: 20211101
